FAERS Safety Report 12668412 (Version 2)
Quarter: 2016Q3

REPORT INFORMATION
  Report Type: Report from Study
  Country: NG (occurrence: NG)
  Receive Date: 20160819
  Receipt Date: 20160824
  Transmission Date: 20161109
  Serious: Yes (Death, Hospitalization, Other)
  Sender: FDA-Public Use
  Company Number: PHHY2016NG057898

PATIENT
  Age: 36 Year
  Sex: Female
  Weight: 52 kg

DRUGS (7)
  1. GLIVEC [Suspect]
     Active Substance: IMATINIB MESYLATE
     Dosage: 200 MG, QD
     Route: 065
  2. DASATINIB [Suspect]
     Active Substance: DASATINIB
     Dosage: 100 MG, QD
     Route: 048
     Dates: start: 20160610, end: 20160802
  3. GLIVEC [Suspect]
     Active Substance: IMATINIB MESYLATE
     Dosage: 400 MG, UNK
     Route: 065
  4. NEUPOGEN [Concomitant]
     Active Substance: FILGRASTIM
     Indication: PRODUCT USED FOR UNKNOWN INDICATION
     Dosage: EVERY  OTHER WEEK (2 TO 3 DAILY DOSES)
     Route: 065
  5. GLIVEC [Suspect]
     Active Substance: IMATINIB MESYLATE
     Indication: CHRONIC MYELOID LEUKAEMIA
     Dosage: 400 MG, QD
     Route: 065
     Dates: start: 20140406
  6. GLIVEC [Suspect]
     Active Substance: IMATINIB MESYLATE
     Dosage: 300 MG, QD
     Route: 065
  7. DASATINIB [Suspect]
     Active Substance: DASATINIB
     Indication: THROMBOCYTOSIS
     Dosage: 100 MG, QD (FOR 30 DAYS)
     Route: 048
     Dates: start: 20160102, end: 20160131

REACTIONS (15)
  - Blood count abnormal [Unknown]
  - Pleural effusion [Unknown]
  - Drug hypersensitivity [Unknown]
  - Bone marrow failure [Fatal]
  - Peptic ulcer [Unknown]
  - Anaemia [Fatal]
  - Pulmonary haemorrhage [Unknown]
  - Hepatomegaly [Unknown]
  - Neutrophilia [Unknown]
  - Thrombocytopenia [Fatal]
  - Neutropenia [Unknown]
  - Hepatic enzyme abnormal [Unknown]
  - Pulmonary tuberculosis [Unknown]
  - Lung disorder [Unknown]
  - Drug intolerance [Unknown]

NARRATIVE: CASE EVENT DATE: 20160727
